FAERS Safety Report 9702115 (Version 1)
Quarter: 2013Q4

REPORT INFORMATION
  Report Type: Spontaneous
  Country: US (occurrence: US)
  Receive Date: 20131121
  Receipt Date: 20131121
  Transmission Date: 20140711
  Serious: Yes (Other)
  Sender: FDA-Public Use
  Company Number: US-B.I. PHARMACEUTICALS,INC./RIDGEFIELD-2013-BI-37347BP

PATIENT
  Age: 66 Year
  Sex: Female

DRUGS (6)
  1. ATROVENT [Suspect]
     Indication: PRODUCT USED FOR UNKNOWN INDICATION
  2. RYTHMOL [Suspect]
     Indication: RESPIRATORY DISORDER
     Dosage: 675 MG
     Route: 065
  3. ADVAIR [Suspect]
     Indication: RESPIRATORY DISORDER
     Dosage: FORMULATION: MULTI DOSE POWDER INHALER DOSE PER APPLICATION: 500/50MCG
     Route: 065
  4. FLONASE AQUEOUS SPRAY (FLUTICASONE PROPIONATE) [Suspect]
     Indication: RESPIRATORY DISORDER
     Dosage: FORMULATION: AQUEOUS SPRAY
     Route: 065
  5. MONTELUKAST SODIUM [Suspect]
     Indication: ASTHMA
     Route: 065
  6. PHYTOMENADIONE [Suspect]
     Indication: PRODUCT USED FOR UNKNOWN INDICATION
     Route: 065

REACTIONS (4)
  - Road traffic accident [Unknown]
  - Bronchitis [Unknown]
  - Asthma [Unknown]
  - Arrhythmia [Unknown]
